FAERS Safety Report 15691634 (Version 2)
Quarter: 2018Q4

REPORT INFORMATION
  Report Type: Spontaneous
  Country: NL (occurrence: NL)
  Receive Date: 20181205
  Receipt Date: 20181207
  Transmission Date: 20190205
  Serious: Yes (Other)
  Sender: FDA-Public Use
  Company Number: PHHY2018NL171663

PATIENT
  Age: 36 Year
  Sex: Male

DRUGS (2)
  1. PIPAMPERON [Concomitant]
     Active Substance: PIPAMPERONE HYDROCHLORIDE
     Indication: PRODUCT USED FOR UNKNOWN INDICATION
     Route: 065
  2. METHYLFENIDAAT [Suspect]
     Active Substance: METHYLPHENIDATE HYDROCHLORIDE
     Indication: ATTENTION DEFICIT/HYPERACTIVITY DISORDER
     Dosage: 20 MG, Q8H (3D 20 MG)
     Route: 065
     Dates: start: 20130105

REACTIONS (1)
  - Priapism [Not Recovered/Not Resolved]

NARRATIVE: CASE EVENT DATE: 20181015
